FAERS Safety Report 8001810-4 (Version None)
Quarter: 2011Q4

REPORT INFORMATION
  Report Type: 
  Country: None (occurrence: None)
  Receive Date: 20111222
  Receipt Date: 20111219
  Transmission Date: 20120403
  Serious: Yes (Other)
  Sender: FDA-Public Use
  Company Number: US-US-EMD SERONO, INC.-7060065

PATIENT
  Sex: Female
  Weight: 91 kg

DRUGS (3)
  1. IBUPROFEN [Concomitant]
     Indication: PREMEDICATION
  2. REBIF [Suspect]
     Indication: PRODUCT USED FOR UNKNOWN INDICATION
     Route: 058
     Dates: start: 20030523
  3. THYROID MEDICATION [Concomitant]
     Indication: THYROID DISORDER

REACTIONS (4)
  - FATIGUE [None]
  - MENISCUS LESION [None]
  - BACK PAIN [None]
  - ALOPECIA [None]
